FAERS Safety Report 9294133 (Version 1)
Quarter: 2013Q2

REPORT INFORMATION
  Report Type: Spontaneous
  Country: US (occurrence: None)
  Receive Date: 20130516
  Receipt Date: 20130516
  Transmission Date: 20140414
  Serious: Yes (Death)
  Sender: FDA-Public Use
  Company Number: None

PATIENT
  Age: 45 Year
  Sex: Male
  Weight: 151.9 kg

DRUGS (11)
  1. XARELTO 15MG JANSSEN [Suspect]
     Indication: THROMBOSIS PROPHYLAXIS
     Dosage: 15MG Q12H PO
     Route: 048
     Dates: start: 20130407, end: 20130410
  2. LOVENOX [Suspect]
     Indication: PULMONARY EMBOLISM
     Dosage: 40MG DAILY PO
     Route: 048
     Dates: start: 20130403, end: 20130407
  3. HUMALOG [Concomitant]
  4. CEFAZOLIN [Concomitant]
  5. KEFZOL [Concomitant]
  6. ALBUTEROL [Concomitant]
  7. PROTONIX [Concomitant]
  8. REGLAN [Concomitant]
  9. DEXAMETHASONE [Concomitant]
  10. CARDIZEM [Concomitant]
  11. EXPAREL [Concomitant]

REACTIONS (4)
  - Fall [None]
  - Dyspnoea [None]
  - Unresponsive to stimuli [None]
  - Pulseless electrical activity [None]
